FAERS Safety Report 22298091 (Version 1)
Quarter: 2023Q2

REPORT INFORMATION
  Report Type: Spontaneous
  Country: None (occurrence: US)
  Receive Date: 20230509
  Receipt Date: 20230509
  Transmission Date: 20230721
  Serious: Yes (Other)
  Sender: FDA-Public Use
  Company Number: US-MSN LABORATORIES PRIVATE LIMITED-2141269

PATIENT
  Sex: Female

DRUGS (1)
  1. LURASIDONE [Suspect]
     Active Substance: LURASIDONE
     Indication: Product used for unknown indication
     Route: 065

REACTIONS (2)
  - Condition aggravated [Unknown]
  - Product substitution issue [Unknown]
